FAERS Safety Report 14332441 (Version 1)
Quarter: 2017Q4

REPORT INFORMATION
  Report Type: Spontaneous
  Country: FR (occurrence: FR)
  Receive Date: 20171228
  Receipt Date: 20171228
  Transmission Date: 20180321
  Serious: Yes (Hospitalization)
  Sender: FDA-Public Use
  Company Number: FR-PFIZER INC-2017545843

PATIENT
  Age: 49 Year
  Sex: Female
  Weight: 120 kg

DRUGS (6)
  1. QUETIAPINE. [Suspect]
     Active Substance: QUETIAPINE
     Indication: SUICIDE ATTEMPT
     Dosage: 18 G, UNK
     Route: 048
     Dates: start: 20171013, end: 20171013
  2. METHADONE [Suspect]
     Active Substance: METHADONE HYDROCHLORIDE
     Indication: SUICIDE ATTEMPT
     Dosage: 120 MG (12 DF), UNK
     Route: 048
     Dates: start: 20171013, end: 20171013
  3. LORMETAZEPAM [Suspect]
     Active Substance: LORMETAZEPAM
     Indication: SUICIDE ATTEMPT
     Dosage: 64 MG, UNK
     Route: 048
     Dates: start: 20171013, end: 20171013
  4. TERCIAN /00759301/ [Suspect]
     Active Substance: CYAMEMAZINE
     Indication: SUICIDE ATTEMPT
     Dosage: 3125 MG (125 DF), UNK
     Route: 048
     Dates: start: 20171013, end: 20171013
  5. VENLAFAXINE HCL [Suspect]
     Active Substance: VENLAFAXINE HYDROCHLORIDE
     Indication: SUICIDE ATTEMPT
     Dosage: 2550 KIU, UNK
     Route: 048
     Dates: start: 20171013, end: 20171013
  6. SERESTA [Suspect]
     Active Substance: OXAZEPAM
     Indication: SUICIDE ATTEMPT
     Dosage: 2000 MG (40 DF), UNK
     Route: 048
     Dates: start: 20171013, end: 20171013

REACTIONS (5)
  - Overdose [Recovered/Resolved]
  - Suicide attempt [Recovered/Resolved]
  - Hypotonia [Recovered/Resolved]
  - Neurological examination abnormal [Recovered/Resolved]
  - Tachycardia [Recovered/Resolved]

NARRATIVE: CASE EVENT DATE: 20171013
